FAERS Safety Report 20370273 (Version 1)
Quarter: 2022Q1

REPORT INFORMATION
  Report Type: Spontaneous
  Country: US (occurrence: None)
  Receive Date: 20220122
  Receipt Date: 20220122
  Transmission Date: 20220423
  Serious: Yes (Disabling, Other)
  Sender: FDA-Public Use
  Company Number: None

PATIENT
  Age: 32 Year
  Sex: Female
  Weight: 78.75 kg

DRUGS (6)
  1. ADZENYS XR-ODT [Suspect]
     Active Substance: AMPHETAMINE
     Indication: Attention deficit hyperactivity disorder
     Dosage: OTHER QUANTITY : 30 TABLET(S);?
     Route: 060
     Dates: start: 20170701, end: 20220122
  2. ADZENYS XR-ODT [Suspect]
     Active Substance: AMPHETAMINE
     Indication: Attention deficit hyperactivity disorder
     Dosage: OTHER QUANTITY : 30 TABLET(S);?FREQUENCY : EVERY DAY BEFORE NOON;?
     Route: 048
     Dates: start: 20170701, end: 20220122
  3. MELOTONIN [Concomitant]
  4. ELDEBERRY VITAMINS [Concomitant]
  5. IMMUNE [Concomitant]
  6. GREEN TEA EXTRACT [Concomitant]

REACTIONS (8)
  - Somnolence [None]
  - Fatigue [None]
  - Pollakiuria [None]
  - Increased appetite [None]
  - Skin reaction [None]
  - Anaemia [None]
  - Somnolence [None]
  - Musculoskeletal stiffness [None]

NARRATIVE: CASE EVENT DATE: 20200301
